FAERS Safety Report 7603936-3 (Version None)
Quarter: 2011Q3

REPORT INFORMATION
  Report Type: 
  Country: None (occurrence: None)
  Receive Date: 20110712
  Receipt Date: 20110630
  Transmission Date: 20111222
  Serious: Yes (Death, Hospitalization)
  Sender: FDA-Public Use
  Company Number: US-ROCHE-785890

PATIENT
  Sex: Female
  Weight: 82.5 kg

DRUGS (3)
  1. TAXOL [Concomitant]
     Dosage: 75 MG/M2, DAYS1,8,15
     Route: 042
     Dates: start: 20100511, end: 20110419
  2. BEVACIZUMAB [Suspect]
     Dosage: 10 MG/KG, Q2W
     Route: 042
     Dates: start: 20100511, end: 20110412
  3. BEVACIZUMAB [Suspect]
     Indication: BREAST CANCER
     Dosage: 10 MG/KG, Q2W
     Route: 042
     Dates: start: 20100511, end: 20110412

REACTIONS (1)
  - MULTI-ORGAN FAILURE [None]
